FAERS Safety Report 11568483 (Version 1)
Quarter: 2015Q3

REPORT INFORMATION
  Report Type: Spontaneous
  Country: US (occurrence: US)
  Receive Date: 20150929
  Receipt Date: 20150929
  Transmission Date: 20151125
  Serious: Yes (Other)
  Sender: FDA-Public Use
  Company Number: US-SA-2015SA141952

PATIENT
  Age: 44 Year
  Sex: Female

DRUGS (2)
  1. PRALUENT [Suspect]
     Active Substance: ALIROCUMAB
     Indication: BLOOD CHOLESTEROL
     Dosage: FREQUENCY: EVERY 2 WEEKS.
     Route: 065
     Dates: start: 20150813, end: 20150827
  2. ALIROCUMAB PREFILLED PEN [Concomitant]
     Indication: BLOOD CHOLESTEROL
     Dates: start: 20150813, end: 20150827

REACTIONS (3)
  - Biliary colic [Unknown]
  - Feeding disorder [Unknown]
  - Weight decreased [Unknown]

NARRATIVE: CASE EVENT DATE: 201509
